FAERS Safety Report 7153416-7 (Version None)
Quarter: 2010Q4

REPORT INFORMATION
  Report Type: 
  Country: None (occurrence: None)
  Receive Date: 20101213
  Receipt Date: 20101207
  Transmission Date: 20110411
  Serious: Yes (Hospitalization)
  Sender: FDA-Public Use
  Company Number: A0891875A

PATIENT
  Sex: Female

DRUGS (1)
  1. TYKERB [Suspect]
     Dosage: 1000MG PER DAY
     Route: 048
     Dates: start: 20101108

REACTIONS (5)
  - FATIGUE [None]
  - NAUSEA [None]
  - PRURITUS [None]
  - VENOOCCLUSIVE LIVER DISEASE [None]
  - VOMITING [None]
